FAERS Safety Report 5680885-1 (Version None)
Quarter: 2008Q1

REPORT INFORMATION
  Report Type: 
  Country: None (occurrence: None)
  Receive Date: 20080325
  Receipt Date: 20041229
  Transmission Date: 20080703
  Serious: Yes (Hospitalization)
  Sender: FDA-Public Use
  Company Number: US022323

PATIENT
  Age: 49 Year
  Sex: Female
  Weight: 79.3795 kg

DRUGS (23)
  1. PROVIGIL [Suspect]
     Indication: FATIGUE
     Dosage: 200 MG BID ORAL
     Route: 048
     Dates: start: 20031229
  2. THYROID TAB [Concomitant]
  3. ACTIQ [Concomitant]
  4. VITAMIN B-12 [Concomitant]
  5. BACLOFEN [Concomitant]
  6. WELLBUTRIN [Concomitant]
  7. COLACE [Concomitant]
  8. DOXEPIN HCL [Concomitant]
  9. EFFEXOR [Concomitant]
  10. FLINTSTONES MULTIPLE VITAMINS [Concomitant]
  11. HALDOL [Concomitant]
  12. LIQUID IBUPROFEN [Concomitant]
  13. KLONOPIN [Concomitant]
  14. NEURONTIN [Concomitant]
  15. NEXIUM [Concomitant]
  16. NORCO [Concomitant]
  17. PREMARIN [Concomitant]
  18. SINEMET [Concomitant]
  19. IMITREX [Concomitant]
  20. FLEXERIL [Concomitant]
  21. TRINSICON [Concomitant]
  22. VIACTIV [Concomitant]
  23. XANAX [Concomitant]

REACTIONS (4)
  - ANAEMIA [None]
  - CANDIDIASIS [None]
  - GASTRIC DISORDER [None]
  - PNEUMONIA [None]
